FAERS Safety Report 6658012-3 (Version None)
Quarter: 2010Q1

REPORT INFORMATION
  Report Type: 
  Country: None (occurrence: None)
  Receive Date: 20100330
  Receipt Date: 20100318
  Transmission Date: 20100710
  Serious: Yes (Other)
  Sender: FDA-Public Use
  Company Number: US-ELI_LILLY_AND_COMPANY-US201001005126

PATIENT
  Sex: Female
  Weight: 92.971 kg

DRUGS (8)
  1. BYETTA [Suspect]
     Indication: GLUCOSE TOLERANCE IMPAIRED
     Dosage: 5 UG, DAILY (1/D)
     Dates: start: 20060401
  2. BYETTA [Suspect]
     Dosage: 10 UG, DAILY (1/D)
     Dates: end: 20090901
  3. BYETTA [Suspect]
     Dosage: 5 UG, DAILY (1/D)
     Dates: start: 20090901, end: 20091218
  4. METFORMIN (GLUCOPHAGE) [Concomitant]
     Indication: GLUCOSE TOLERANCE IMPAIRED
     Dosage: 2500 MG, DAILY (1/D)
     Route: 048
     Dates: start: 20040101
  5. ZESTRIL [Concomitant]
     Indication: BLOOD PRESSURE
     Dosage: 5 MG, DAILY (1/D)
     Dates: start: 20040101
  6. SIMVASTATIN [Concomitant]
     Indication: BLOOD CHOLESTEROL
     Dosage: 40 MG, DAILY (1/D)
     Dates: start: 20090801
  7. LIPITOR [Concomitant]
     Indication: HYPERLIPIDAEMIA
     Dosage: 20 MG, DAILY (1/D)
     Dates: start: 20040101, end: 20090101
  8. AVANDIA [Concomitant]
     Indication: DIABETES MELLITUS
     Dosage: 2 MG, DAILY (1/D)
     Dates: start: 20060101

REACTIONS (5)
  - HEPATIC MASS [None]
  - NAUSEA [None]
  - OFF LABEL USE [None]
  - PANCREATITIS [None]
  - WEIGHT DECREASED [None]
